FAERS Safety Report 12664440 (Version 3)
Quarter: 2016Q3

REPORT INFORMATION
  Report Type: Report from Study
  Country: US (occurrence: US)
  Receive Date: 20160818
  Receipt Date: 20160919
  Transmission Date: 20161109
  Serious: Yes (Hospitalization)
  Sender: FDA-Public Use
  Company Number: US-BRISTOL-MYERS SQUIBB COMPANY-BMS-2016-066994

PATIENT
  Age: 62 Year
  Sex: Male
  Weight: 83.5 kg

DRUGS (4)
  1. BORTEZOMIB [Suspect]
     Active Substance: BORTEZOMIB
     Indication: PLASMA CELL MYELOMA
     Dosage: 4.4 MG, UNK
     Route: 065
     Dates: start: 20151026, end: 20160801
  2. ELOTUZUMAB. [Suspect]
     Active Substance: ELOTUZUMAB
     Indication: PLASMA CELL MYELOMA
     Dosage: 1862 MG, UNK
     Route: 042
     Dates: start: 20151026, end: 20160801
  3. DEXAMETHASONE. [Suspect]
     Active Substance: DEXAMETHASONE
     Indication: PLASMA CELL MYELOMA
     Dosage: 36 MG, UNK
     Route: 065
     Dates: start: 20151026
  4. LENALIDOMIDE [Suspect]
     Active Substance: LENALIDOMIDE
     Indication: PLASMA CELL MYELOMA
     Dosage: 210 MG, QD
     Route: 048
     Dates: start: 20151026, end: 20160801

REACTIONS (1)
  - Neck pain [Unknown]

NARRATIVE: CASE EVENT DATE: 20160810
